FAERS Safety Report 7635563-6 (Version None)
Quarter: 2011Q3

REPORT INFORMATION
  Report Type: 
  Country: None (occurrence: None)
  Receive Date: 20110726
  Receipt Date: 20110714
  Transmission Date: 20111222
  Serious: Yes (Hospitalization)
  Sender: FDA-Public Use
  Company Number: CA-JNJFOC-20110707102

PATIENT
  Sex: Male

DRUGS (4)
  1. REMICADE [Suspect]
     Indication: PSORIATIC ARTHROPATHY
     Dosage: PATIENT'S LAST INFUSION WAS ON 19-MAY-2011
     Route: 042
  2. REMICADE [Suspect]
     Dosage: PATIENT'S LAST INFUSION WAS ON 19-MAY-2011
     Route: 042
     Dates: start: 20110519
  3. METHOTREXATE [Concomitant]
     Route: 065
  4. FOLIC ACID [Concomitant]
     Route: 065

REACTIONS (1)
  - SUNBURN [None]
